FAERS Safety Report 9983669 (Version 2)
Quarter: 2014Q2

REPORT INFORMATION
  Report Type: Spontaneous
  Country: US (occurrence: US)
  Receive Date: 20140307
  Receipt Date: 20140407
  Transmission Date: 20141212
  Serious: Yes (Other)
  Sender: FDA-Public Use
  Company Number: US-TEVA-467305USA

PATIENT
  Age: 28 Year
  Sex: Female
  Weight: 73.55 kg

DRUGS (3)
  1. PARAGARD 380A [Suspect]
     Indication: CONTRACEPTION
     Route: 015
     Dates: start: 20140128, end: 20140228
  2. PARAGARD 380A [Suspect]
     Route: 015
     Dates: start: 20140228
  3. XARELTO [Concomitant]
     Indication: PRODUCT USED FOR UNKNOWN INDICATION
     Dosage: 20 MILLIGRAM DAILY;
     Route: 048

REACTIONS (2)
  - Device dislocation [Recovered/Resolved]
  - Device expulsion [Recovered/Resolved]
